FAERS Safety Report 4587991-3 (Version None)
Quarter: 2005Q1

REPORT INFORMATION
  Report Type: 
  Country: None (occurrence: None)
  Receive Date: 20050221
  Receipt Date: 20040908
  Transmission Date: 20050727
  Serious: Yes (Life-Threatening, Hospitalization)
  Sender: FDA-Public Use
  Company Number: BR-ABBOTT-04P-020-0272652-00

PATIENT
  Sex: Male
  Weight: 64.6 kg

DRUGS (24)
  1. RITONAVIR SOFT GELATIN CAPSULES [Suspect]
     Indication: HIV INFECTION
     Route: 048
     Dates: start: 20040524, end: 20040901
  2. RITONAVIR SOFT GELATIN CAPSULES [Suspect]
     Dates: start: 20040914
  3. TMC114 [Concomitant]
     Indication: HIV INFECTION
     Route: 048
     Dates: start: 20040524, end: 20040901
  4. TMC114 [Concomitant]
     Dates: start: 20040914
  5. TENOFOVIR [Concomitant]
     Indication: HIV INFECTION
     Route: 048
     Dates: start: 20030401
  6. TENOFOVIR [Concomitant]
     Route: 048
     Dates: start: 20040914
  7. LAMIVUDINE [Concomitant]
     Indication: HIV INFECTION
     Route: 048
     Dates: start: 20031101
  8. LAMIVUDINE [Concomitant]
     Dates: start: 20040914
  9. IRON [Concomitant]
     Indication: ANAEMIA
     Route: 048
     Dates: end: 20040524
  10. LOPERAMIDE HCL [Concomitant]
     Indication: ANTIDIARRHOEAL SUPPORTIVE CARE
     Route: 048
  11. BACTRIM [Concomitant]
     Indication: INFECTION PROPHYLAXIS
     Route: 048
  12. METAMIZOLE SODIUM [Concomitant]
     Indication: PYREXIA
     Route: 048
     Dates: start: 20040524
  13. DIMETICONE [Concomitant]
     Indication: FLATULENCE
     Route: 048
     Dates: start: 20040529
  14. FLUCONAZOLE [Concomitant]
     Indication: ORAL CANDIDIASIS
     Route: 048
     Dates: start: 20040526
  15. FLUCONAZOLE [Concomitant]
     Indication: ANTIFUNGAL PROPHYLAXIS
     Route: 048
     Dates: start: 20040618
  16. FLUCONAZOLE [Concomitant]
     Route: 048
     Dates: start: 20040629
  17. FLUCONAZOLE [Concomitant]
     Route: 048
     Dates: start: 20040922
  18. FLUCONAZOLE [Concomitant]
     Route: 048
     Dates: start: 20040927
  19. VALACYCLOVIR HCL [Concomitant]
     Indication: PROPHYLAXIS
     Route: 048
     Dates: start: 20040621
  20. VALACYCLOVIR HCL [Concomitant]
  21. GALENIC /PARACETAMOL/CODEINE/ [Concomitant]
     Indication: PERICARDITIS
     Route: 048
     Dates: start: 20040910
  22. AMITRIPTYLINE [Concomitant]
     Indication: PERICARDITIS
     Route: 048
     Dates: start: 20040927
  23. BROMOPRIDE [Concomitant]
     Indication: VOMITING
     Route: 048
     Dates: start: 20040821
  24. TOCOPHEROL CONCENTRATE CAP [Concomitant]
     Indication: MEDICAL DIET
     Route: 048
     Dates: start: 20040720

REACTIONS (2)
  - PERICARDITIS [None]
  - TUBERCULOSIS [None]
